FAERS Safety Report 6136682-6 (Version None)
Quarter: 2009Q1

REPORT INFORMATION
  Report Type: 
  Country: None (occurrence: None)
  Receive Date: 20090330
  Receipt Date: 20090318
  Transmission Date: 20090719
  Serious: Yes (Death, Other)
  Sender: FDA-Public Use
  Company Number: LB-PFIZER INC-2009184860

PATIENT

DRUGS (6)
  1. VFEND [Suspect]
     Indication: OESOPHAGEAL CANDIDIASIS
     Dosage: FREQUENCY: 2X/DAY, EVERY DAY;
     Route: 042
     Dates: start: 20090220, end: 20090224
  2. VFEND [Suspect]
     Indication: FEBRILE NEUTROPENIA
  3. IMIPENEM [Concomitant]
     Dosage: UNK
     Route: 042
     Dates: start: 20090219
  4. TEICOPLANIN [Concomitant]
     Dosage: UNK
     Route: 042
     Dates: start: 20090222
  5. LEVOTHYROXINE SODIUM [Concomitant]
     Route: 048
     Dates: start: 20090222
  6. ALL OTHER THERAPEUTIC PRODUCTS [Concomitant]
     Route: 042
     Dates: start: 20090219

REACTIONS (5)
  - ANURIA [None]
  - CHOLESTASIS [None]
  - HEPATIC FAILURE [None]
  - LIVER INJURY [None]
  - RENAL FAILURE [None]
